FAERS Safety Report 5640604-1 (Version None)
Quarter: 2008Q1

REPORT INFORMATION
  Report Type: 
  Country: None (occurrence: None)
  Receive Date: 20080227
  Receipt Date: 20080214
  Transmission Date: 20080703
  Serious: Yes (Other)
  Sender: FDA-Public Use
  Company Number: IN-AMGEN-UK265778

PATIENT
  Age: 47 Year
  Sex: Male

DRUGS (3)
  1. NEULASTIM [Suspect]
     Indication: CHEMOTHERAPY
     Dates: start: 20080122
  2. DAUNOMYCIN [Concomitant]
     Dates: start: 20080114, end: 20080120
  3. CYTARABINE [Concomitant]
     Dates: start: 20080114, end: 20080120

REACTIONS (2)
  - FEBRILE NEUTROPENIA [None]
  - NO THERAPEUTIC RESPONSE [None]
